FAERS Safety Report 4852489-1 (Version None)
Quarter: 2005Q4

REPORT INFORMATION
  Report Type: 
  Country: None (occurrence: None)
  Receive Date: 20051213
  Receipt Date: 20040323
  Transmission Date: 20060501
  Serious: Yes (Death, Hospitalization)
  Sender: FDA-Public Use
  Company Number: PHHO2004US04357

PATIENT
  Age: 72 Year
  Sex: Male

DRUGS (15)
  1. IMATINIB VS PLACEBO [Suspect]
     Indication: PROSTATE CANCER METASTATIC
     Dosage: 600 MG, QD
     Route: 048
     Dates: start: 20040312
  2. TAXOTERE [Suspect]
     Indication: PROSTATE CANCER METASTATIC
     Dosage: 60MG
     Route: 042
     Dates: start: 20040312
  3. PREDNISONE [Concomitant]
  4. ALLOPURINOL [Concomitant]
  5. PROCARDIA XL [Concomitant]
  6. ZESTRIL [Concomitant]
  7. VICODIN [Concomitant]
  8. TRAMADOL HCL [Concomitant]
  9. METHOCARBAMOL [Concomitant]
  10. NEURONTIN [Concomitant]
  11. COLCHICINE [Concomitant]
  12. CLARINEX [Concomitant]
  13. MULTIVITAMIN [Concomitant]
  14. FLUOCINONIDE [Concomitant]
  15. DURAGESIC-100 [Concomitant]

REACTIONS (28)
  - ACUTE RESPIRATORY DISTRESS SYNDROME [None]
  - ACUTE RESPIRATORY FAILURE [None]
  - ANURIA [None]
  - CENTRAL VENOUS PRESSURE DECREASED [None]
  - DIVERTICULITIS [None]
  - DYSPNOEA [None]
  - ESCHERICHIA INFECTION [None]
  - FLUID RETENTION [None]
  - GASTROINTESTINAL PERFORATION [None]
  - GENERAL PHYSICAL HEALTH DETERIORATION [None]
  - HYPOTENSION [None]
  - HYPOXIA [None]
  - ILEUS PARALYTIC [None]
  - LIVER FUNCTION TEST ABNORMAL [None]
  - MEAN ARTERIAL PRESSURE DECREASED [None]
  - MULTI-ORGAN FAILURE [None]
  - NAUSEA [None]
  - OEDEMA [None]
  - PERITONITIS [None]
  - PLEURAL EFFUSION [None]
  - PYREXIA [None]
  - RENAL FAILURE ACUTE [None]
  - SEPSIS [None]
  - TACHYCARDIA [None]
  - TROPONIN INCREASED [None]
  - URINE OUTPUT DECREASED [None]
  - VOMITING [None]
  - WEIGHT INCREASED [None]
